FAERS Safety Report 7959649-1 (Version None)
Quarter: 2011Q4

REPORT INFORMATION
  Report Type: 
  Country: None (occurrence: None)
  Receive Date: 20111201
  Receipt Date: 20111122
  Transmission Date: 20120403
  Serious: Yes (Death, Hospitalization)
  Sender: FDA-Public Use
  Company Number: 1000025083

PATIENT
  Age: 66 Year
  Sex: Male
  Weight: 98.8 kg

DRUGS (14)
  1. SPIRIVA (TIOTROPIUM BROMIDE) (TIOTROPIUM BROMIDE) [Concomitant]
  2. PLAVIX (CLOPIDOGREL BISULFATE) (TABLETS) (CLOPIDOGREL BISULFATE) [Concomitant]
  3. NEXIUM (ESOMEPRAZOLE) (CAPSULES) (ESOMEPRAZOLE) [Concomitant]
  4. CARDIZEM CD (DILTIAZEM HYDROCHLORIDE) (DILTIAZEM HYDROCHLORIDE) [Concomitant]
  5. ADVAIR DISKUS (FLUTICASONE, SALMETEROL) [Concomitant]
  6. HYDROCODONE/APAP (HYDROCODONE, ACETAMINOPHEN) (HYDROCODONE, ACETAMINOP [Concomitant]
  7. CIPRO (CIPROFLOXACIN) (TABLETS) (CIPROFLOXACIN) [Concomitant]
  8. ZETIA (EZETIMIBE) (TABLETS) (EZETIMIBE) [Concomitant]
  9. DALIRESP [Suspect]
     Indication: CHRONIC OBSTRUCTIVE PULMONARY DISEASE
     Dosage: 500 MCG (500 MG, 1 IN 1 D), ORAL
     Route: 048
     Dates: start: 20111020
  10. JANUMET (SITAGLIPTAN, METFORMIN) (TABLETS) (SITAGLIPTAN, METFORMIN) [Concomitant]
  11. SYMBICORT (BUDESONIDE W/FORMOTEROL FUMARATE) (BUDESONIDE W/FORMOTEROL [Concomitant]
  12. ZOCOR (SIMVASTATIN) (TABLETS) (SIMVASTATIN) [Concomitant]
  13. MYCOSTATIN (NYSTATIN) (NYSTATIN) [Concomitant]
  14. COUMADIN (WARFARIN) (TABLETS) (WARFARIN) [Concomitant]

REACTIONS (1)
  - CEREBRAL HAEMORRHAGE [None]
